FAERS Safety Report 20208171 (Version 2)
Quarter: 2022Q1

REPORT INFORMATION
  Report Type: Report from Study
  Country: JP (occurrence: JP)
  Receive Date: 20211220
  Receipt Date: 20220119
  Transmission Date: 20220423
  Serious: Yes (Hospitalization, Other)
  Sender: FDA-Public Use
  Company Number: JP-BRISTOL-MYERS SQUIBB COMPANY-BMS-2021-138052

PATIENT
  Age: 71 Year
  Sex: Male
  Weight: 49.5 kg

DRUGS (28)
  1. NIVOLUMAB [Suspect]
     Active Substance: NIVOLUMAB
     Indication: Pancreatic carcinoma
     Dosage: 480 MILLIGRAM, Q4WK
     Route: 041
     Dates: start: 20211118
  2. GIMERACIL\OTERACIL\TEGAFUR [Suspect]
     Active Substance: GIMERACIL\OTERACIL\TEGAFUR
     Indication: Pancreatic carcinoma
     Dosage: 120 MG, ORAL ONLY ON THE DAY OF RADIATION IRRADIATION
     Route: 048
     Dates: start: 20211118, end: 20211210
  3. EDOXABAN TOSYLATE [Concomitant]
     Active Substance: EDOXABAN TOSYLATE
     Indication: Atrial fibrillation
     Dosage: 30 MG, AFTER BREAKFAST
     Route: 048
     Dates: start: 202003, end: 20211210
  4. VONOPRAZAN FUMARATE [Concomitant]
     Active Substance: VONOPRAZAN FUMARATE
     Indication: Gastritis prophylaxis
     Dosage: 10 MG, AFTER BREAKFAST
     Route: 048
     Dates: start: 20211208, end: 20211210
  5. CALONAL [Concomitant]
     Active Substance: ACETAMINOPHEN
     Indication: Abdominal pain
     Dosage: 400 MG, WHEN YOU HAVE A FEVER, IN PAIN
     Route: 048
     Dates: start: 20211110, end: 20211210
  6. CALONAL [Concomitant]
     Active Substance: ACETAMINOPHEN
     Indication: Pyrexia
  7. ZOLPIDEM TARTRATE [Concomitant]
     Active Substance: ZOLPIDEM TARTRATE
     Indication: Insomnia
     Dosage: 5 MG, AT THE TIME OF INSOMNIA
     Route: 048
     Dates: start: 20211102, end: 20211210
  8. MAGNESIUM OXIDE [Concomitant]
     Active Substance: MAGNESIUM OXIDE
     Indication: Constipation
     Dosage: 1980 MG, AFTER EACH MEAL
     Route: 048
     Dates: start: 20211111, end: 20211210
  9. HYALURONATE SODIUM [Concomitant]
     Active Substance: HYALURONATE SODIUM
     Indication: Dry eye
     Dosage: 5 ML, Q8H, LEFT AND RIGHT
     Route: 047
     Dates: start: 20211111
  10. METOCLOPRAMIDE [Concomitant]
     Active Substance: METOCLOPRAMIDE
     Indication: Nausea
     Dosage: 5 MG, 1 TABLET/DOSE, AS-NEEDED USE
     Route: 048
     Dates: start: 20211126
  11. METOCLOPRAMIDE [Concomitant]
     Active Substance: METOCLOPRAMIDE
     Indication: Decreased appetite
     Dosage: 15 MG, BEFORE EVERY MEAL
     Route: 048
     Dates: start: 20211128, end: 20211210
  12. LORAZEPAM [Concomitant]
     Active Substance: LORAZEPAM
     Indication: Nausea
     Dosage: 0.5 MG, BEFORE SLEEP
     Route: 048
     Dates: start: 20211129, end: 20211209
  13. LORAZEPAM [Concomitant]
     Active Substance: LORAZEPAM
     Dosage: 1 MG, AFTER BREAKFAST, BEFORE SLEEP
     Route: 048
     Dates: start: 20211210, end: 20211210
  14. ANAMORELIN HYDROCHLORIDE [Concomitant]
     Active Substance: ANAMORELIN HYDROCHLORIDE
     Indication: Decreased appetite
     Dosage: 100 MG, QD (WHEN WAKING UP)
     Route: 048
     Dates: start: 20211130, end: 20211210
  15. KETOPROFEN [Concomitant]
     Active Substance: KETOPROFEN
     Indication: Abdominal pain
     Dosage: UNK, EVERYDAY, ONE ON EACH SHOULDER AND LOWER BACK
     Route: 062
     Dates: start: 20211202
  16. KETOPROFEN [Concomitant]
     Active Substance: KETOPROFEN
     Indication: Pyrexia
  17. OMEPRAZOLE [Concomitant]
     Active Substance: OMEPRAZOLE
     Indication: Gastritis prophylaxis
     Dosage: 20 MG, Q12H
     Route: 041
     Dates: start: 20211210
  18. ELNEOPA NF NO.1 [Concomitant]
     Indication: Nutritional supplementation
     Dosage: UNK UNK, QD
     Route: 041
     Dates: start: 20211211
  19. AMINO ACIDS, SOURCE UNSPECIFIED [Concomitant]
     Active Substance: AMINO ACIDS, SOURCE UNSPECIFIED
     Indication: Nutritional supplementation
     Dosage: UNK UNK, QD
     Route: 041
     Dates: start: 20211211
  20. SOYBEAN OIL [Concomitant]
     Active Substance: SOYBEAN OIL
     Indication: Nutritional supplementation
     Dosage: 250 MILLILITER, QD
     Route: 041
     Dates: start: 20211211
  21. HEPARIN [Concomitant]
     Active Substance: HEPARIN SODIUM
     Indication: Atrial fibrillation
     Dosage: 10000 DOSAGE FORM, QD
     Route: 041
     Dates: start: 20211211, end: 20211211
  22. HEPARIN [Concomitant]
     Active Substance: HEPARIN SODIUM
     Dosage: 12000 DOSAGE FORM, QD
     Route: 041
     Dates: start: 20211212
  23. ACETAMINOPHEN [Concomitant]
     Active Substance: ACETAMINOPHEN
     Indication: Abdominal pain
     Dosage: 500 MG, DURING FEVER
     Route: 041
     Dates: start: 20211211
  24. ACETAMINOPHEN [Concomitant]
     Active Substance: ACETAMINOPHEN
     Indication: Pyrexia
  25. PENTAZOCINE [Concomitant]
     Active Substance: PENTAZOCINE
     Indication: Insomnia
     Dosage: 7.5 MG, AT THE TIME OF INSOMNIA
     Route: 030
     Dates: start: 20211211
  26. HYDROXYZINE HYDROCHLORIDE [Concomitant]
     Active Substance: HYDROXYZINE HYDROCHLORIDE
     Indication: Insomnia
     Dosage: 12.5 MG, AT THE TIME OF INSOMNIA
     Route: 030
     Dates: start: 20211211
  27. DICLOFENAC SODIUM [Concomitant]
     Active Substance: DICLOFENAC SODIUM
     Indication: Abdominal pain
     Dosage: 25 MG, IN PAIN
     Route: 054
     Dates: start: 20211212
  28. CEFTRIAXONE SODIUM [Concomitant]
     Active Substance: CEFTRIAXONE SODIUM
     Indication: Bacteraemia
     Dosage: 2 GRAM, QD
     Route: 041
     Dates: start: 20211211

REACTIONS (2)
  - Duodenal obstruction [Recovered/Resolved]
  - Enterocolitis infectious [Recovered/Resolved]

NARRATIVE: CASE EVENT DATE: 20211212
